FAERS Safety Report 5247026-6 (Version None)
Quarter: 2007Q1

REPORT INFORMATION
  Report Type: 
  Country: None (occurrence: None)
  Receive Date: 20070226
  Receipt Date: 20070223
  Transmission Date: 20070707
  Serious: Yes (Death, Hospitalization, Other)
  Sender: FDA-Public Use
  Company Number: JP-GLAXOSMITHKLINE-B0459528A

PATIENT
  Age: 54 Year
  Sex: Male
  Weight: 56 kg

DRUGS (29)
  1. ALKERAN [Suspect]
     Indication: CORD BLOOD TRANSPLANT THERAPY
     Route: 042
     Dates: start: 20060529, end: 20060529
  2. FLUDARABINE PHOSPHATE [Suspect]
     Indication: CORD BLOOD TRANSPLANT THERAPY
     Route: 042
     Dates: start: 20060524, end: 20060528
  3. PREDONINE [Suspect]
     Indication: IMMUNOSUPPRESSANT DRUG THERAPY
     Route: 065
     Dates: start: 20060711, end: 20060825
  4. SOLU-MEDROL [Suspect]
     Indication: IMMUNOSUPPRESSANT DRUG THERAPY
     Route: 042
     Dates: start: 20060811, end: 20060710
  5. CIPROFLOXACIN [Suspect]
     Route: 048
     Dates: start: 20060519, end: 20060608
  6. GASTER D [Suspect]
     Route: 048
     Dates: start: 20060519, end: 20060622
  7. DIFLUCAN [Suspect]
     Route: 048
     Dates: start: 20060519, end: 20060622
  8. ZOVIRAX [Suspect]
     Route: 048
     Dates: start: 20060524, end: 20060703
  9. FUROSEMIDE [Suspect]
     Route: 042
     Dates: start: 20060530, end: 20060609
  10. SODIUM CHLORIDE [Suspect]
     Route: 048
     Dates: start: 20060624, end: 20060708
  11. GRAN [Concomitant]
     Dates: start: 20060601, end: 20060705
  12. CYCLOSPORINE [Concomitant]
     Indication: IMMUNOSUPPRESSANT DRUG THERAPY
     Route: 065
     Dates: start: 20060530, end: 20060801
  13. METHOTREXATE [Concomitant]
     Indication: IMMUNOSUPPRESSANT DRUG THERAPY
     Route: 065
     Dates: start: 20060531, end: 20060606
  14. LENDORMIN [Concomitant]
     Route: 048
     Dates: start: 20060519, end: 20060622
  15. BAKTAR [Concomitant]
     Route: 048
     Dates: start: 20060519, end: 20060530
  16. URSO [Concomitant]
     Route: 048
     Dates: start: 20060519, end: 20060622
  17. PRIMPERAN [Concomitant]
     Dates: start: 20060524, end: 20060528
  18. KYTRIL [Concomitant]
     Route: 042
     Dates: start: 20060529, end: 20060529
  19. MAGNESIUM SULFATE [Concomitant]
     Dates: start: 20060531, end: 20060801
  20. HAPTOGLOBIN [Concomitant]
     Route: 042
     Dates: start: 20060531, end: 20060531
  21. SELBEX [Concomitant]
     Route: 048
     Dates: start: 20060519, end: 20060623
  22. NEUART [Concomitant]
     Route: 042
     Dates: start: 20060605, end: 20060605
  23. MEROPEN [Concomitant]
     Route: 042
     Dates: start: 20060614, end: 20060617
  24. UNKNOWN DRUG [Concomitant]
     Route: 042
     Dates: start: 20060618, end: 20060626
  25. VANCOMYCIN HYDROCHLORIDE [Concomitant]
     Route: 042
     Dates: start: 20060617, end: 20060626
  26. DIAZEPAM [Concomitant]
     Dates: start: 20060623, end: 20060623
  27. GASTER [Concomitant]
     Dates: start: 20060623, end: 20060825
  28. HANP [Concomitant]
     Route: 042
     Dates: start: 20060709, end: 20060712
  29. INOVAN [Concomitant]
     Route: 042
     Dates: start: 20060709, end: 20060712

REACTIONS (6)
  - C-REACTIVE PROTEIN INCREASED [None]
  - CARDIAC FAILURE [None]
  - CONVULSION [None]
  - HYPONATRAEMIA [None]
  - INTERSTITIAL LUNG DISEASE [None]
  - PNEUMOTHORAX [None]
